FAERS Safety Report 21668186 (Version 1)
Quarter: 2022Q4

REPORT INFORMATION
  Report Type: Spontaneous
  Country: PL (occurrence: PL)
  Receive Date: 20221201
  Receipt Date: 20221201
  Transmission Date: 20230112
  Serious: Yes (Hospitalization)
  Sender: FDA-Public Use
  Company Number: None

PATIENT
  Age: 70 Year
  Sex: Male

DRUGS (2)
  1. GEMCITABINE [Suspect]
     Active Substance: GEMCITABINE
     Indication: Pancreatic carcinoma
     Dosage: IN CYCLES EVERY 28 DAYS DAY 1, 8 AND 15, POWDER FOR SUSPENSION FOR INFUSION, UNIT DOSE : 1462 MG, DU
     Route: 065
     Dates: start: 20180116, end: 20180905
  2. ABRAXANE [Suspect]
     Active Substance: PACLITAXEL
     Indication: Pancreatic carcinoma
     Dosage: IN CYCLES EVERY 28 DAYS DAY 1, 8 AND 15, POWDER FOR SUSPENSION FOR INFUSION,  UNIT DOSE : 182 MG, DU
     Dates: start: 20180116, end: 20180905

REACTIONS (2)
  - Thrombocytopenia [Recovered/Resolved]
  - Anaemia [Recovered/Resolved]

NARRATIVE: CASE EVENT DATE: 20180912
